FAERS Safety Report 4408249-9 (Version None)
Quarter: 2004Q3

REPORT INFORMATION
  Report Type: 
  Country: None (occurrence: None)
  Receive Date: 20040722
  Receipt Date: 20040709
  Transmission Date: 20050211
  Serious: Yes (Death, Other)
  Sender: FDA-Public Use
  Company Number: 2004045903

PATIENT
  Age: 54 Year
  Sex: Male

DRUGS (4)
  1. VIAGRA [Suspect]
     Indication: ILL-DEFINED DISORDER
     Dosage: 50 MG
  2. ALL OTHER THERAPEUTIC PRODUCTS (ALL OTHER THERAPEUTIC PRODUCTS) [Concomitant]
  3. FUROSEMIDE [Concomitant]
  4. METOCLOPRAMIDE [Concomitant]

REACTIONS (4)
  - ACUTE MYOCARDIAL INFARCTION [None]
  - ACUTE PULMONARY OEDEMA [None]
  - CARDIOMEGALY [None]
  - CORONARY ARTERY OCCLUSION [None]
